FAERS Safety Report 9535469 (Version 2)
Quarter: 2013Q4

REPORT INFORMATION
  Report Type: Spontaneous
  Country: JP (occurrence: JP)
  Receive Date: 20130918
  Receipt Date: 20131028
  Transmission Date: 20140711
  Serious: Yes (Other)
  Sender: FDA-Public Use
  Company Number: JP-009507513-1309JPN006628

PATIENT
  Age: 45 Year
  Sex: Male

DRUGS (4)
  1. ESLAX [Suspect]
     Indication: NEUROMUSCULAR BLOCKING THERAPY
     Dosage: DAILY DOSAGE UNKNOWN
     Route: 042
  2. PROPOFOL [Suspect]
     Indication: INDUCTION OF ANAESTHESIA
     Dosage: DAILY DOSE UNKNOWN
     Route: 042
  3. REMIFENTANIL HYDROCHLORIDE [Suspect]
     Indication: INDUCTION OF ANAESTHESIA
     Dosage: DAILY DOSE UNKNOWN
     Route: 042
  4. SEVOFLURANE [Suspect]
     Indication: MAINTENANCE OF ANAESTHESIA
     Dosage: DAILY DOSE UNKNOWN
     Route: 042

REACTIONS (5)
  - Cardiac arrest [Recovered/Resolved]
  - Resuscitation [Unknown]
  - Cardiac pacemaker insertion [Unknown]
  - Sick sinus syndrome [Unknown]
  - Sinus arrest [Recovered/Resolved]
